FAERS Safety Report 6835452-0 (Version None)
Quarter: 2010Q3

REPORT INFORMATION
  Report Type: 
  Country: None (occurrence: None)
  Receive Date: 20100713
  Receipt Date: 20100707
  Transmission Date: 20110219
  Serious: Yes (Life-Threatening, Hospitalization)
  Sender: FDA-Public Use
  Company Number: FR-KINGPHARMUSA00001-K201000848

PATIENT
  Age: 36 Year
  Sex: Female
  Weight: 60 kg

DRUGS (6)
  1. ALTACE [Suspect]
     Dosage: 2.5 MG, QD
     Route: 048
     Dates: start: 20100422, end: 20100502
  2. ALTACE [Suspect]
     Dosage: 2.5 MG, QD
     Route: 048
     Dates: start: 20100507, end: 20100510
  3. ALTACE [Suspect]
     Dosage: 5 MG, QD
     Route: 048
     Dates: start: 20100511, end: 20100512
  4. VANCOMYCIN [Suspect]
     Dosage: 1000 MG, BID
     Route: 042
     Dates: start: 20100426, end: 20100504
  5. TAZOBAC [Suspect]
     Indication: CHILLS
     Dosage: 1 DF, TID
     Route: 042
     Dates: start: 20100418, end: 20100503
  6. TAZOBAC [Suspect]
     Dosage: 1 DF, QD
     Dates: start: 20100506, end: 20100506

REACTIONS (2)
  - DRUG ERUPTION [None]
  - RENAL FAILURE ACUTE [None]
